FAERS Safety Report 7016089-X (Version None)
Quarter: 2010Q3

REPORT INFORMATION
  Report Type: 
  Country: None (occurrence: None)
  Receive Date: 20100923
  Receipt Date: 20100916
  Transmission Date: 20110219
  Serious: Yes (Hospitalization)
  Sender: FDA-Public Use
  Company Number: 018830

PATIENT

DRUGS (3)
  1. LEVETIRACETAM [Suspect]
     Indication: CONVULSION
     Dosage: () (2500 MG)
  2. VALPROIC ACID [Suspect]
     Indication: CONVULSION
     Dosage: ()
  3. OXCARBAZEPINE [Suspect]
     Indication: CONVULSION
     Dosage: ()

REACTIONS (2)
  - CONDITION AGGRAVATED [None]
  - GRAND MAL CONVULSION [None]
